FAERS Safety Report 4314417-7 (Version None)
Quarter: 2004Q1

REPORT INFORMATION
  Report Type: 
  Country: None (occurrence: None)
  Receive Date: 20040309
  Receipt Date: 20040302
  Transmission Date: 20041129
  Serious: Yes (Hospitalization)
  Sender: FDA-Public Use
  Company Number: FR-GLAXOSMITHKLINE-B0325334A

PATIENT
  Age: 77 Year
  Sex: Female

DRUGS (6)
  1. ZINNAT [Suspect]
     Dosage: 500MG PER DAY
     Route: 048
  2. SINTROM [Suspect]
     Indication: PULMONARY EMBOLISM
     Dosage: .25UNIT PER DAY
     Route: 048
  3. LEVOTHYROXINE SODIUM [Concomitant]
     Indication: HYPOTHYROIDISM
  4. CIBADREX [Concomitant]
     Indication: HYPERTENSION
     Dosage: 10MG PER DAY
  5. ARIMIDEX [Concomitant]
     Indication: BREAST CANCER
  6. RISORDAN [Concomitant]
     Dosage: 60MG UNKNOWN
     Route: 048

REACTIONS (8)
  - ANAEMIA [None]
  - COAGULOPATHY [None]
  - DRUG INTERACTION [None]
  - HAEMATOMA [None]
  - HAEMOGLOBIN DECREASED [None]
  - INTERNATIONAL NORMALISED RATIO INCREASED [None]
  - MUSCLE HAEMORRHAGE [None]
  - PAIN [None]
